FAERS Safety Report 4860845-0 (Version None)
Quarter: 2005Q4

REPORT INFORMATION
  Report Type: 
  Country: None (occurrence: None)
  Receive Date: 20051216
  Receipt Date: 20051130
  Transmission Date: 20060501
  Serious: Yes (Hospitalization)
  Sender: FDA-Public Use
  Company Number: EWC050543833

PATIENT
  Age: 61 Year
  Sex: Male
  Weight: 70.4 kg

DRUGS (13)
  1. PEMETREXED (PEMETREXED) VIAL [Suspect]
     Indication: NON-SMALL CELL LUNG CANCER
     Dosage: 500 MG/M2, INTRAVENOUS
     Route: 042
     Dates: start: 20050425, end: 20050629
  2. CISPLATIN [Suspect]
     Indication: NON-SMALL CELL LUNG CANCER
     Dosage: 75 MG/M2, INTRAVENOUS
     Route: 042
     Dates: start: 20050425
  3. PARACETAMOL (PARACETAMOL) [Concomitant]
  4. NADROPARINE CALCIUM (NADROPARINE CALCIUM) [Concomitant]
  5. SIMVASTATIN ^ORIFARM^ (SIMVASTATIN RATIOPHARM) [Concomitant]
  6. PIRACETAM (PIRACETAM) [Concomitant]
  7. FOLIC ACID [Concomitant]
  8. OL-AMINE [Concomitant]
  9. VITAMIN B12 [Concomitant]
  10. MEDROL [Concomitant]
  11. SOLU-MEDROL [Concomitant]
  12. MEDROL [Concomitant]
  13. ULTRA-MG (MAGNESIUM GLUCONATE) [Concomitant]

REACTIONS (7)
  - HAEMOGLOBIN DECREASED [None]
  - HEPATIC CYST [None]
  - METASTASES TO LIVER [None]
  - RENAL IMPAIRMENT [None]
  - RENAL INFARCT [None]
  - THROMBOSIS [None]
  - WHITE BLOOD CELL COUNT INCREASED [None]
